FAERS Safety Report 15803603 (Version 1)
Quarter: 2019Q1

REPORT INFORMATION
  Report Type: Spontaneous
  Country: US (occurrence: US)
  Receive Date: 20190109
  Receipt Date: 20190109
  Transmission Date: 20190417
  Serious: No
  Sender: FDA-Public Use
  Company Number: US-ABBVIE-18K-163-2310619-00

PATIENT
  Age: 71 Year
  Sex: Male

DRUGS (1)
  1. DUOPA [Suspect]
     Active Substance: CARBIDOPA\LEVODOPA
     Indication: PRODUCT USED FOR UNKNOWN INDICATION
     Route: 050
     Dates: start: 20161010

REACTIONS (5)
  - On and off phenomenon [Recovering/Resolving]
  - Muscular weakness [Recovering/Resolving]
  - Device kink [Unknown]
  - Device occlusion [Unknown]
  - Device dislocation [Unknown]

NARRATIVE: CASE EVENT DATE: 201803
